FAERS Safety Report 12553547 (Version 3)
Quarter: 2016Q3

REPORT INFORMATION
  Report Type: Report from Study
  Country: MX (occurrence: MX)
  Receive Date: 20160713
  Receipt Date: 20160919
  Transmission Date: 20161109
  Serious: Yes (Other)
  Sender: FDA-Public Use
  Company Number: MX-BAYER-2016-131347

PATIENT
  Age: 40 Year
  Sex: Female
  Weight: 109 kg

DRUGS (9)
  1. BETAFERON [Suspect]
     Active Substance: INTERFERON BETA-1B
     Indication: MULTIPLE SCLEROSIS
     Dosage: 1 DF, QOD
     Route: 058
     Dates: start: 20160310, end: 20160629
  2. LEVOTHYROXINE. [Concomitant]
     Active Substance: LEVOTHYROXINE
     Dosage: 3 DF, QD
  3. METOCLOPRAMIDE. [Concomitant]
     Active Substance: METOCLOPRAMIDE
     Dosage: 1 DF, BEFORE EVERY MEAL
  4. SUCRALFATE. [Concomitant]
     Active Substance: SUCRALFATE
     Dosage: 1 DF, QD
  5. OMEPRAZOLE. [Concomitant]
     Active Substance: OMEPRAZOLE
     Dosage: 1 DF, QD
  6. CALCIUM BICARBONATE [Concomitant]
     Active Substance: CALCIUM BICARBONATE
     Dosage: 2 DF, Q8HR
  7. BETAFERON [Suspect]
     Active Substance: INTERFERON BETA-1B
     Indication: MULTIPLE SCLEROSIS
     Dosage: 1 DF, QOD
     Route: 058
     Dates: start: 201608
  8. TELMISARTAN. [Concomitant]
     Active Substance: TELMISARTAN
     Dosage: 1 DF, BID
  9. CALCITROL [Concomitant]
     Active Substance: CALCITRIOL
     Dosage: 1 DF, Q8HR

REACTIONS (14)
  - Convulsions local [Recovered/Resolved]
  - Urticaria [Recovered/Resolved]
  - Oedema peripheral [Not Recovered/Not Resolved]
  - Seizure [Recovered/Resolved]
  - Seizure [Recovered/Resolved]
  - Oral herpes [Recovered/Resolved]
  - Mobility decreased [Not Recovered/Not Resolved]
  - Seizure [Recovered/Resolved]
  - Decreased activity [Not Recovered/Not Resolved]
  - Back pain [Recovered/Resolved]
  - Haematuria [Recovered/Resolved]
  - Loss of consciousness [Recovered/Resolved]
  - Feeling abnormal [Recovered/Resolved]
  - Seizure [Recovered/Resolved]

NARRATIVE: CASE EVENT DATE: 201606
